FAERS Safety Report 6018250-X (Version None)
Quarter: 2008Q4

REPORT INFORMATION
  Report Type: 
  Country: None (occurrence: None)
  Receive Date: 20081223
  Receipt Date: 20081212
  Transmission Date: 20090506
  Serious: Yes (Other)
  Sender: FDA-Public Use
  Company Number: JP-BRISTOL-MYERS SQUIBB COMPANY-14430540

PATIENT
  Age: 32 Year
  Sex: Male
  Weight: 75 kg

DRUGS (6)
  1. ABILIFY [Suspect]
     Indication: SCHIZOPHRENIA
     Route: 048
     Dates: start: 20080709, end: 20080726
  2. SERENACE [Suspect]
     Dosage: 15MG DAILY IV DRIP FROM 20JUL08 TO 26JUL08
     Route: 030
     Dates: start: 20080719, end: 20080719
  3. FLUNITRAZEPAM [Concomitant]
     Dosage: FORMULATION-TABLET
     Dates: start: 20080606
  4. LENDORMIN [Concomitant]
     Dosage: FORMULATION-TABLET
     Dates: start: 20080709
  5. HIRNAMIN [Concomitant]
     Dates: start: 20080709
  6. CHLORPROMAZINE HCL [Concomitant]
     Dosage: ALSO TAKEN AS FORMULATION-INJECTION ON 19JUL08-19JUL08
     Dates: start: 20080709

REACTIONS (5)
  - AGITATION [None]
  - HALLUCINATION, AUDITORY [None]
  - IRRITABILITY [None]
  - NEUROLEPTIC MALIGNANT SYNDROME [None]
  - PERSECUTORY DELUSION [None]
